FAERS Safety Report 9015444 (Version 1)
Quarter: 2013Q1

REPORT INFORMATION
  Report Type: Spontaneous
  Country: US (occurrence: None)
  Receive Date: 20130102
  Receipt Date: 20130102
  Transmission Date: 20140127
  Serious: Yes (Disabling, Other)
  Sender: FDA-Public Use
  Company Number: 2012P1067890

PATIENT
  Age: 80 Year
  Sex: Male

DRUGS (10)
  1. ISONIAZID [Suspect]
  2. VALPROIC ACID [Suspect]
     Indication: SCHIZOPHRENIA
  3. VALPROIC ACID [Suspect]
     Indication: CONVULSION
  4. PYRIDOXINE [Concomitant]
  5. QUETIAPINE [Concomitant]
  6. OXYCODONE [Concomitant]
  7. TAMSULOSIN [Concomitant]
  8. FINASTERIDE [Concomitant]
  9. OMEPRAZOLE [Concomitant]
  10. CYANOCOBALAMIN [Concomitant]

REACTIONS (9)
  - Ammonia increased [None]
  - Lethargy [None]
  - Decreased appetite [None]
  - Drooling [None]
  - Dysarthria [None]
  - Weight decreased [None]
  - Activities of daily living impaired [None]
  - Anticonvulsant drug level above therapeutic [None]
  - Toxicity to various agents [None]
